FAERS Safety Report 6063987-X (Version None)
Quarter: 2009Q1

REPORT INFORMATION
  Report Type: 
  Country: None (occurrence: None)
  Receive Date: 20090130
  Receipt Date: 20090122
  Transmission Date: 20090719
  Serious: Yes (Death, Life-Threatening)
  Sender: FDA-Public Use
  Company Number: TAP2008Q00760

PATIENT
  Age: 7 Year
  Sex: Male
  Weight: 25.4014 kg

DRUGS (4)
  1. PREVACID [Suspect]
     Indication: GASTROOESOPHAGEAL REFLUX DISEASE
     Dosage: 30 MG (30MG IN 1 D), ORAL
     Route: 048
  2. SYMBICORT [Suspect]
     Indication: ASTHMA
     Dosage: INHALATION
     Route: 055
  3. SINGULAIR [Suspect]
     Indication: ASTHMA
  4. NASONEX [Suspect]
     Indication: ASTHMA

REACTIONS (5)
  - BRONCHIAL SECRETION RETENTION [None]
  - CHEST DISCOMFORT [None]
  - EOSINOPHILIC BRONCHITIS [None]
  - FALL [None]
  - STATUS ASTHMATICUS [None]
